FAERS Safety Report 17904787 (Version 1)
Quarter: 2020Q2

REPORT INFORMATION
  Report Type: Spontaneous
  Country: US (occurrence: US)
  Receive Date: 20200616
  Receipt Date: 20200616
  Transmission Date: 20200714
  Serious: No
  Sender: FDA-Public Use
  Company Number: US-ROCHE-2565233

PATIENT
  Sex: Female

DRUGS (5)
  1. CITALOPRAM HYDROBROMIDE. [Concomitant]
     Active Substance: CITALOPRAM HYDROBROMIDE
  2. VERZENIO [Concomitant]
     Active Substance: ABEMACICLIB
  3. LETROZOLE. [Concomitant]
     Active Substance: LETROZOLE
  4. ACTEMRA [Suspect]
     Active Substance: TOCILIZUMAB
     Indication: BREAST CANCER
     Route: 065
     Dates: start: 20200215
  5. LEVOTHYROXINE SODIUM. [Concomitant]
     Active Substance: LEVOTHYROXINE SODIUM

REACTIONS (3)
  - Intentional product use issue [Unknown]
  - Off label use [Unknown]
  - No adverse event [Unknown]
